FAERS Safety Report 25110895 (Version 1)
Quarter: 2025Q1

REPORT INFORMATION
  Report Type: Spontaneous
  Country: RU (occurrence: RU)
  Receive Date: 20250324
  Receipt Date: 20250324
  Transmission Date: 20250409
  Serious: Yes (Death)
  Sender: ORGANON
  Company Number: RU-ORGANON-O2503RUS001973

PATIENT
  Age: 86 Year
  Sex: Female

DRUGS (1)
  1. DIPROSPAN [Suspect]
     Active Substance: BETAMETHASONE DIPROPIONATE\BETAMETHASONE SODIUM PHOSPHATE
     Indication: Analgesic therapy

REACTIONS (3)
  - Death [Fatal]
  - Malaise [Unknown]
  - Nasopharyngitis [Unknown]
